FAERS Safety Report 17467551 (Version 2)
Quarter: 2020Q2

REPORT INFORMATION
  Report Type: Report from Study
  Country: IT (occurrence: IT)
  Receive Date: 20200227
  Receipt Date: 20200423
  Transmission Date: 20200713
  Serious: Yes (Hospitalization)
  Sender: FDA-Public Use
  Company Number: IT-PFIZER INC-2020083699

PATIENT
  Age: 26 Year
  Sex: Female

DRUGS (4)
  1. LYRICA [Suspect]
     Active Substance: PREGABALIN
     Dosage: 30 DF, TOTAL
     Route: 048
     Dates: start: 20191006, end: 20191006
  2. TOPAMAX [Concomitant]
     Active Substance: TOPIRAMATE
     Dosage: 2 DF, UNK
     Route: 048
  3. RESILIENT [Concomitant]
     Active Substance: LITHIUM SULFATE
     Dosage: UNK
  4. ABILIFY [Concomitant]
     Active Substance: ARIPIPRAZOLE
     Dosage: 10 MG, UNK

REACTIONS (4)
  - Headache [Unknown]
  - Drug abuse [Unknown]
  - Nausea [Unknown]
  - Intentional self-injury [Unknown]

NARRATIVE: CASE EVENT DATE: 20191006
